FAERS Safety Report 5099118-2 (Version None)
Quarter: 2006Q3

REPORT INFORMATION
  Report Type: 
  Country: None (occurrence: None)
  Receive Date: 20060731
  Receipt Date: 20051005
  Transmission Date: 20061208
  Serious: Yes (Other)
  Sender: FDA-Public Use
  Company Number: 218363

PATIENT
  Sex: Male

DRUGS (5)
  1. RITUXAN [Suspect]
     Indication: LYMPHOMA
     Dates: start: 20050901
  2. DOXORUBICIN HCL [Concomitant]
  3. VINCRISTINE [Concomitant]
  4. CYTOXAN [Concomitant]
  5. ALEVE [Concomitant]

REACTIONS (1)
  - HYPERSENSITIVITY [None]
